FAERS Safety Report 11526461 (Version 1)
Quarter: 2015Q3

REPORT INFORMATION
  Report Type: Spontaneous
  Country: US (occurrence: US)
  Receive Date: 20150903
  Receipt Date: 20150903
  Transmission Date: 20151125
  Serious: No
  Sender: FDA-Public Use
  Company Number: US-ELI_LILLY_AND_COMPANY-US201310003219

PATIENT
  Sex: Male

DRUGS (2)
  1. CYMBALTA [Suspect]
     Active Substance: DULOXETINE HYDROCHLORIDE
     Indication: ANXIETY
     Dosage: 60 MG, QD
     Route: 065
     Dates: start: 201302, end: 20131001
  2. CYMBALTA [Suspect]
     Active Substance: DULOXETINE HYDROCHLORIDE
     Indication: BACK PAIN

REACTIONS (19)
  - Abnormal dreams [Not Recovered/Not Resolved]
  - Back pain [Not Recovered/Not Resolved]
  - Drug dose omission [Unknown]
  - Insomnia [Unknown]
  - Irritability [Unknown]
  - Hyperhidrosis [Unknown]
  - Intentional product misuse [Unknown]
  - Inappropriate affect [Unknown]
  - Vertigo [Not Recovered/Not Resolved]
  - Anger [Unknown]
  - Drug withdrawal syndrome [Unknown]
  - Tinnitus [Unknown]
  - Procedural haemorrhage [Unknown]
  - Paraesthesia [Unknown]
  - Feeling abnormal [Unknown]
  - Hallucination [Unknown]
  - Dizziness [Unknown]
  - Paranoia [Unknown]
  - Crying [Unknown]

NARRATIVE: CASE EVENT DATE: 201306
